FAERS Safety Report 8476533-8 (Version None)
Quarter: 2012Q2

REPORT INFORMATION
  Report Type: 
  Country: None (occurrence: None)
  Receive Date: 20120628
  Receipt Date: 20120619
  Transmission Date: 20120825
  Serious: Yes (Hospitalization)
  Sender: FDA-Public Use
  Company Number: US-JNJFOC-20120610444

PATIENT
  Sex: Female

DRUGS (1)
  1. REMICADE [Suspect]
     Indication: RHEUMATOID ARTHRITIS
     Route: 042

REACTIONS (7)
  - PNEUMONIA [None]
  - GENERAL PHYSICAL CONDITION ABNORMAL [None]
  - RHEUMATOID ARTHRITIS [None]
  - PAIN [None]
  - STRESS CARDIOMYOPATHY [None]
  - STRESS [None]
  - DRUG INEFFECTIVE [None]
